FAERS Safety Report 9114598 (Version 1)
Quarter: 2013Q1

REPORT INFORMATION
  Report Type: Spontaneous
  Country: US (occurrence: US)
  Receive Date: 20130130
  Receipt Date: 20130130
  Transmission Date: 20140127
  Serious: No
  Sender: FDA-Public Use
  Company Number: US-009507513-1301USA011654

PATIENT
  Age: 38 Year
  Sex: Female

DRUGS (1)
  1. CLARINEX [Suspect]
     Indication: SINUSITIS
     Dosage: 5 MG, QD
     Route: 048
     Dates: start: 20130113, end: 20130119

REACTIONS (3)
  - Rhinorrhoea [Recovering/Resolving]
  - Cough [Recovering/Resolving]
  - Drug ineffective [Unknown]
